FAERS Safety Report 13238739 (Version 1)
Quarter: 2017Q1

REPORT INFORMATION
  Report Type: Spontaneous
  Country: US (occurrence: US)
  Receive Date: 20170216
  Receipt Date: 20170216
  Transmission Date: 20170428
  Serious: Yes (Other)
  Sender: FDA-Public Use
  Company Number: US-CLINIGEN GROUP PLC/ CLINIGEN HEALTHCARE LTD-E2B_00001802

PATIENT
  Sex: Female

DRUGS (10)
  1. ETHYOL [Suspect]
     Active Substance: AMIFOSTINE
     Indication: ADVERSE DRUG REACTION
     Dosage: 200MG/M2X3D* 2 CYCLE(S)
     Route: 042
     Dates: start: 19961218, end: 19970103
  2. ETHYOL [Suspect]
     Active Substance: AMIFOSTINE
     Indication: ADVERSE DRUG REACTION
     Dosage: 200MG/M2X3D 2ND CYCLE(S)
     Route: 042
     Dates: start: 19961231, end: 19970103
  3. ETHYOL [Suspect]
     Active Substance: AMIFOSTINE
     Indication: ADVERSE DRUG REACTION
     Dosage: 200MG/M2X3D 2ND CYCLE(S)
     Route: 042
     Dates: start: 19961231, end: 19970103
  4. ETHYOL [Suspect]
     Active Substance: AMIFOSTINE
     Indication: ADVERSE DRUG REACTION
     Dosage: 200MG/M2X3D 1ST CYCLE(S)
     Route: 042
     Dates: start: 19961218, end: 19961220
  5. ETHYOL [Suspect]
     Active Substance: AMIFOSTINE
     Indication: ADVERSE DRUG REACTION
     Dosage: 200MG/M2X3D 1ST CYCLE(S)
     Route: 042
     Dates: start: 19961218, end: 19961220
  6. UNKNOWN [Concomitant]
     Active Substance: UNSPECIFIED INGREDIENT
     Route: 065
  7. ETHYOL [Suspect]
     Active Substance: AMIFOSTINE
     Indication: ADVERSE DRUG REACTION
     Dosage: 200MG/M2X3D* 2 CYCLE(S)
     Route: 042
     Dates: start: 19961218, end: 19970103
  8. ETHYOL [Suspect]
     Active Substance: AMIFOSTINE
     Indication: ADVERSE DRUG REACTION
     Dosage: 200MG/M2X3D* 2 CYCLE(S)
     Route: 042
     Dates: start: 19961218, end: 19970103
  9. ETHYOL [Suspect]
     Active Substance: AMIFOSTINE
     Indication: ADVERSE DRUG REACTION
     Dosage: 200MG/M2X3D 1ST CYCLE(S)
     Route: 042
     Dates: start: 19961218, end: 19961220
  10. ETHYOL [Suspect]
     Active Substance: AMIFOSTINE
     Indication: ADVERSE DRUG REACTION
     Dosage: 200MG/M2X3D 2ND CYCLE(S)
     Route: 042
     Dates: start: 19961231, end: 19970103

REACTIONS (1)
  - Arrhythmia [Recovered/Resolved]

NARRATIVE: CASE EVENT DATE: 19961219
